FAERS Safety Report 11793208 (Version 1)
Quarter: 2015Q4

REPORT INFORMATION
  Report Type: Report from Study
  Country: DE (occurrence: DE)
  Receive Date: 20151202
  Receipt Date: 20151202
  Transmission Date: 20160305
  Serious: Yes (Hospitalization)
  Sender: FDA-Public Use
  Company Number: DE-TEVA-612064GER

PATIENT
  Age: 78 Year
  Sex: Female
  Weight: 83 kg

DRUGS (12)
  1. AMITRYPTILIN [Concomitant]
     Indication: DEPRESSION
     Dosage: 25 MILLIGRAM DAILY;
     Route: 048
  2. PANTOPRAZOL [Concomitant]
     Active Substance: PANTOPRAZOLE SODIUM
     Indication: DYSPEPSIA
     Dosage: 40 MILLIGRAM DAILY;
     Route: 048
     Dates: start: 20150622
  3. DOXORUBICIN [Suspect]
     Active Substance: DOXORUBICIN
     Indication: NON-HODGKIN^S LYMPHOMA
     Dosage: LAST DOSE PRIOR TO AE: 26-AUG-2015
     Route: 042
     Dates: start: 20150612, end: 20150826
  4. CYCLOPHOSPHAMID [Suspect]
     Active Substance: CYCLOPHOSPHAMIDE
     Indication: NON-HODGKIN^S LYMPHOMA
     Dosage: LAST DOSE PRIOR TO AE: 26-AUG-2015
     Route: 042
     Dates: start: 20150612, end: 20150826
  5. BISOPROLOL [Concomitant]
     Active Substance: BISOPROLOL
     Indication: CHEST PAIN
     Dosage: 50 MILLIGRAM DAILY;
     Route: 048
     Dates: start: 20150812
  6. MOVICOL [Concomitant]
     Active Substance: POLYETHYLENE GLYCOL 3350\POTASSIUM CHLORIDE\SODIUM BICARBONATE\SODIUM CHLORIDE
     Indication: CONSTIPATION
     Route: 048
     Dates: start: 20150812
  7. PREDNISON [Concomitant]
     Active Substance: PREDNISONE
     Route: 048
     Dates: start: 20150612
  8. LYRICA [Concomitant]
     Active Substance: PREGABALIN
     Indication: DEPRESSION
     Dosage: 600 MILLIGRAM DAILY; 500-0-100
     Route: 048
  9. VINCRISTIN [Concomitant]
     Active Substance: VINCRISTINE
     Route: 048
     Dates: start: 20150612
  10. RITUXIMAB [Concomitant]
     Active Substance: RITUXIMAB
     Route: 048
     Dates: start: 20150611
  11. LONQUEX [Suspect]
     Active Substance: LIPEGFILGRASTIM
     Indication: NEUTROPENIA
     Dosage: LAST DOSE PRIOR TO AE: 27-AUG-2015
     Dates: start: 20150615, end: 20150827
  12. NOVALGIN [Concomitant]
     Active Substance: METAMIZOLE SODIUM
     Indication: CHEST PAIN
     Route: 048
     Dates: start: 20150729

REACTIONS (1)
  - General physical health deterioration [Recovered/Resolved]

NARRATIVE: CASE EVENT DATE: 20150913
